FAERS Safety Report 5485663-4 (Version None)
Quarter: 2007Q4

REPORT INFORMATION
  Report Type: 
  Country: None (occurrence: None)
  Receive Date: 20071011
  Receipt Date: 20070925
  Transmission Date: 20080405
  Serious: Yes (Death)
  Sender: FDA-Public Use
  Company Number: T07-ARG-03815-01

PATIENT
  Age: 75 Year
  Sex: Male
  Weight: 63.5 kg

DRUGS (3)
  1. MEMANTINE HCL [Suspect]
     Indication: DEMENTIA ALZHEIMER'S TYPE
     Dosage: 28 MG QD PO
     Route: 048
     Dates: start: 20070627, end: 20070813
  2. DONEPEZIL HCL [Concomitant]
  3. EZOPICLONE [Concomitant]

REACTIONS (5)
  - ACUTE RESPIRATORY FAILURE [None]
  - ANXIETY [None]
  - CARDIAC FAILURE [None]
  - CARDIOGENIC SHOCK [None]
  - DYSPNOEA [None]
